FAERS Safety Report 10932829 (Version 1)
Quarter: 2015Q1

REPORT INFORMATION
  Report Type: Spontaneous
  Country: US (occurrence: None)
  Receive Date: 20150319
  Receipt Date: 20150319
  Transmission Date: 20150721
  Serious: No
  Sender: FDA-Public Use
  Company Number: 2014CT000197

PATIENT
  Age: 48 Year
  Sex: Female
  Weight: 77.11 kg

DRUGS (6)
  1. KORLYM [Suspect]
     Active Substance: MIFEPRISTONE
     Indication: CUSHING^S SYNDROME
     Route: 048
     Dates: start: 20140724
  2. CYMBALTA [Concomitant]
     Active Substance: DULOXETINE HYDROCHLORIDE
  3. LUNESTA [Concomitant]
     Active Substance: ESZOPICLONE
  4. ABILIFY [Concomitant]
     Active Substance: ARIPIPRAZOLE
  5. LOSARTAN [Concomitant]
     Active Substance: LOSARTAN
  6. ASA [Concomitant]
     Active Substance: ASPIRIN

REACTIONS (9)
  - Lack of spontaneous speech [None]
  - Impaired self-care [None]
  - Weight decreased [None]
  - Seizure [None]
  - Gait disturbance [None]
  - Facial paresis [None]
  - Tremor [None]
  - Urinary tract infection [None]
  - Amnesia [None]

NARRATIVE: CASE EVENT DATE: 20141107
